FAERS Safety Report 4709572-0 (Version None)
Quarter: 2005Q3

REPORT INFORMATION
  Report Type: 
  Country: None (occurrence: None)
  Receive Date: 20050706
  Receipt Date: 20050624
  Transmission Date: 20060218
  Serious: Yes (Death, Other)
  Sender: FDA-Public Use
  Company Number: 2005057350

PATIENT
  Sex: Female
  Weight: 0.78 kg

DRUGS (7)
  1. NIFEDIPINE [Suspect]
     Indication: PREMATURE LABOUR
     Dosage: 40 MG PLACENTAL
     Route: 064
     Dates: start: 20031018
  2. NIFEDIPINE [Suspect]
     Indication: TOCOLYSIS
     Dosage: 40 MG PLACENTAL
     Route: 064
     Dates: start: 20031018
  3. NIFEDIPINE [Suspect]
     Indication: PREMATURE LABOUR
     Dosage: 40 MG, PLACENTAL
     Route: 064
  4. NIFEDIPINE [Suspect]
     Indication: TOCOLYSIS
     Dosage: 40 MG, PLACENTAL
     Route: 064
  5. INDOMETHACIN [Concomitant]
     Route: 064
  6. ATOSIBAN (ATOSIBAN) [Concomitant]
     Route: 064
  7. CORTICOSTEROIDS (CORTICOSTEROIDS) [Concomitant]
     Route: 064

REACTIONS (9)
  - BRADYCARDIA FOETAL [None]
  - BRAIN OEDEMA [None]
  - BREECH PRESENTATION [None]
  - DRUG EXPOSURE DURING PREGNANCY [None]
  - FOETAL CARDIAC DISORDER [None]
  - FOETAL DISORDER [None]
  - INTRA-UTERINE DEATH [None]
  - PLACENTAL DISORDER [None]
  - STILLBIRTH [None]
